FAERS Safety Report 8346435-6 (Version None)
Quarter: 2012Q2

REPORT INFORMATION
  Report Type: 
  Country: None (occurrence: None)
  Receive Date: 20120509
  Receipt Date: 20120427
  Transmission Date: 20120825
  Serious: Yes (Hospitalization, Other)
  Sender: FDA-Public Use
  Company Number: US-PFIZER INC-2012000035

PATIENT
  Sex: Male
  Weight: 101.2 kg

DRUGS (11)
  1. COUMADIN [Suspect]
     Dosage: 5 MG, 1X/DAY
     Route: 048
     Dates: start: 20111212, end: 20111228
  2. SUTENT [Suspect]
     Dosage: 37.5 MG, 1X/DAY
     Route: 048
     Dates: start: 20120126, end: 20120131
  3. COUMADIN [Suspect]
     Indication: DEEP VEIN THROMBOSIS
     Dosage: 7.5/5.0 MG, 1X/DAY
     Route: 048
     Dates: start: 20111201, end: 20111212
  4. LOVENOX [Suspect]
     Dosage: 1 MG/KG, 2X/DAY
     Route: 058
     Dates: start: 20120106, end: 20120131
  5. ZYRTEC [Concomitant]
     Route: 048
  6. LOVENOX [Suspect]
     Indication: DEEP VEIN THROMBOSIS
     Dosage: 1 MG/KG, 2X/DAY
     Route: 058
     Dates: start: 20111117, end: 20111209
  7. HYDRALAZINE [Concomitant]
     Dosage: 75 MG, 3X/DAY
     Route: 048
  8. SUTENT [Suspect]
     Indication: RENAL CELL CARCINOMA
     Dosage: 50 MG, 1X/DAY
     Route: 048
     Dates: start: 20110915, end: 20111013
  9. VITAMIN D [Concomitant]
     Route: 048
  10. SUTENT [Suspect]
     Dosage: 37.5 MG, 1X/DAY
     Route: 048
     Dates: start: 20111028, end: 20111227
  11. LISINOPRIL [Concomitant]
     Dosage: 10 MG, UNK
     Route: 048

REACTIONS (1)
  - SUBDURAL HAEMATOMA [None]
